FAERS Safety Report 24367999 (Version 1)
Quarter: 2024Q3

REPORT INFORMATION
  Report Type: Report from Study
  Country: US (occurrence: US)
  Receive Date: 20240926
  Receipt Date: 20240926
  Transmission Date: 20241016
  Serious: Yes (Hospitalization, Other)
  Sender: NOVARTIS
  Company Number: US-002147023-NVSC2024US005684

PATIENT
  Age: 77 Year
  Sex: Female

DRUGS (2)
  1. PIQRAY [Suspect]
     Active Substance: ALPELISIB
     Indication: Breast cancer metastatic
     Dosage: 200 MG, QD
     Route: 048
     Dates: start: 20231104, end: 20231208
  2. FULVESTRANT [Concomitant]
     Active Substance: FULVESTRANT
     Indication: Product used for unknown indication
     Dosage: 250 MG, OTHER (250 MG (2) EVERY 4 WEEKS AFTER LOADING DOSE)
     Route: 030

REACTIONS (12)
  - Blood glucose increased [Recovered/Resolved]
  - Lung disorder [Unknown]
  - Pulmonary toxicity [Recovering/Resolving]
  - Diabetes mellitus inadequate control [Unknown]
  - Hyperglycaemia [Unknown]
  - Pneumonia aspiration [Unknown]
  - Chronic respiratory failure [Unknown]
  - Drug intolerance [Unknown]
  - Oral pain [Unknown]
  - Decreased appetite [Unknown]
  - Chronic obstructive pulmonary disease [Unknown]
  - Pulmonary mass [Unknown]

NARRATIVE: CASE EVENT DATE: 20231117
